FAERS Safety Report 8126507-1 (Version None)
Quarter: 2012Q1

REPORT INFORMATION
  Report Type: 
  Country: None (occurrence: None)
  Receive Date: 20120209
  Receipt Date: 20081127
  Transmission Date: 20120608
  Serious: Yes (Other)
  Sender: FDA-Public Use
  Company Number: PHHY2008AU043888

PATIENT
  Sex: Female

DRUGS (1)
  1. ZOLEDRONOC ACID [Suspect]
     Dosage: UNK
     Route: 042
     Dates: start: 20081127

REACTIONS (4)
  - NAUSEA [None]
  - BLOOD PRESSURE DECREASED [None]
  - SYNCOPE [None]
  - PALLOR [None]
